FAERS Safety Report 20729271 (Version 1)
Quarter: 2022Q2

REPORT INFORMATION
  Report Type: Spontaneous
  Country: JP (occurrence: JP)
  Receive Date: 20220420
  Receipt Date: 20220420
  Transmission Date: 20220721
  Serious: Yes (Other)
  Sender: FDA-Public Use
  Company Number: JP-ALKEM LABORATORIES LIMITED-JP-ALKEM-2022-01715

PATIENT
  Age: 57 Year
  Sex: Female

DRUGS (2)
  1. AZATHIOPRINE [Suspect]
     Active Substance: AZATHIOPRINE
     Indication: Pemphigus
     Dosage: 100 MILLIGRAM, QD
     Route: 065
  2. PREDNISOLONE [Suspect]
     Active Substance: PREDNISOLONE
     Indication: Pemphigus
     Dosage: 1 MILLIGRAM/KILOGRAM, QD
     Route: 065

REACTIONS (2)
  - Leukopenia [Recovered/Resolved]
  - Diffuse alopecia [Recovering/Resolving]
